FAERS Safety Report 12906777 (Version 1)
Quarter: 2016Q4

REPORT INFORMATION
  Report Type: Spontaneous
  Country: US (occurrence: US)
  Receive Date: 20161101
  Receipt Date: 20161101
  Transmission Date: 20170207
  Serious: Yes (Other)
  Sender: FDA-Public Use
  Company Number: None

PATIENT
  Age: 70 Year
  Sex: Male
  Weight: 114 kg

DRUGS (4)
  1. PROPOFOL. [Suspect]
     Active Substance: PROPOFOL
     Indication: SEDATIVE THERAPY
     Dosage: 200 MG INTRAVENOUS INFUSION/PUSH?
     Route: 042
  2. MORPHINE [Concomitant]
     Active Substance: MORPHINE
  3. VERSED [Concomitant]
     Active Substance: MIDAZOLAM HYDROCHLORIDE
  4. ANCEF [Concomitant]
     Active Substance: CEFAZOLIN SODIUM

REACTIONS (3)
  - Restlessness [None]
  - Ventricular arrhythmia [None]
  - Electrocardiogram ST segment elevation [None]

NARRATIVE: CASE EVENT DATE: 20161101
